FAERS Safety Report 16634670 (Version 1)
Quarter: 2019Q3

REPORT INFORMATION
  Report Type: Spontaneous
  Country: JP (occurrence: JP)
  Receive Date: 20190726
  Receipt Date: 20190726
  Transmission Date: 20191004
  Serious: Yes (Death, Other)
  Sender: FDA-Public Use
  Company Number: JP-TEVA-2019-JP-1083946

PATIENT
  Age: 66 Year
  Sex: Female

DRUGS (3)
  1. BEVACIZUMAB. [Suspect]
     Active Substance: BEVACIZUMAB
     Indication: BREAST CANCER METASTATIC
     Dosage: THIRD LINE CHEMOTHERAPY
     Route: 065
  2. EXEMESTANE. [Suspect]
     Active Substance: EXEMESTANE
     Indication: BREAST CANCER METASTATIC
     Dosage: RECEIVED FOR 2 YEARS 10 MONTHS
     Route: 065
  3. PACLITAXEL. [Suspect]
     Active Substance: PACLITAXEL
     Indication: BREAST CANCER METASTATIC
     Dosage: THIRD LINE CHEMOTHERAPY
     Route: 065

REACTIONS (4)
  - Hepatic function abnormal [Fatal]
  - Ascites [Not Recovered/Not Resolved]
  - Hepatic atrophy [Not Recovered/Not Resolved]
  - Hepatic cirrhosis [Fatal]
